FAERS Safety Report 5328075-6 (Version None)
Quarter: 2007Q2

REPORT INFORMATION
  Report Type: 
  Country: None (occurrence: None)
  Receive Date: 20070517
  Receipt Date: 20070511
  Transmission Date: 20071010
  Serious: Yes (Hospitalization)
  Sender: FDA-Public Use
  Company Number: US-MERCK-0705USA02622

PATIENT
  Age: 70 Year
  Sex: Female

DRUGS (2)
  1. JANUVIA [Suspect]
     Route: 048
  2. METFORMIN [Concomitant]
     Route: 065

REACTIONS (1)
  - LIPASE INCREASED [None]
